FAERS Safety Report 6035157-2 (Version None)
Quarter: 2009Q1

REPORT INFORMATION
  Report Type: 
  Country: None (occurrence: None)
  Receive Date: 20090112
  Receipt Date: 20090109
  Transmission Date: 20090719
  Serious: Yes (Hospitalization, Disabling)
  Sender: FDA-Public Use
  Company Number: JP-B.I. PHARMACEUTICALS,INC./RIDGEFIELD-2008-BP-14390NB

PATIENT
  Sex: Female
  Weight: 40 kg

DRUGS (4)
  1. MICARDIS [Suspect]
     Indication: HYPERTENSION
     Dosage: 40MG
     Route: 048
     Dates: start: 20060517, end: 20080207
  2. PREDONINE [Concomitant]
     Dosage: 5MG
     Route: 048
  3. ENALAPRIL MALEATE [Concomitant]
     Indication: HYPERTENSION
     Dosage: 5MG
     Route: 048
  4. LASIX [Concomitant]
     Indication: HYPERTENSION
     Dosage: 20MG
     Route: 048
     Dates: start: 20050101

REACTIONS (2)
  - CEREBRAL INFARCTION [None]
  - FEMORAL NECK FRACTURE [None]
